FAERS Safety Report 8415085-5 (Version None)
Quarter: 2012Q2

REPORT INFORMATION
  Report Type: 
  Country: None (occurrence: None)
  Receive Date: 20120606
  Receipt Date: 20120531
  Transmission Date: 20120825
  Serious: Yes (Hospitalization)
  Sender: FDA-Public Use
  Company Number: US-AMGEN-USASP2012034306

PATIENT
  Age: 49 Year
  Sex: Female

DRUGS (1)
  1. ENBREL [Suspect]
     Indication: RHEUMATOID ARTHRITIS
     Dosage: 25 MG, 2 TIMES/WK
     Dates: start: 20040101

REACTIONS (16)
  - OSTEOARTHRITIS [None]
  - NASOPHARYNGITIS [None]
  - NAUSEA [None]
  - H1N1 INFLUENZA [None]
  - FIBROMYALGIA [None]
  - IMPAIRED HEALING [None]
  - INJECTION SITE HAEMATOMA [None]
  - HEADACHE [None]
  - POST LUMBAR PUNCTURE SYNDROME [None]
  - INFECTION SUSCEPTIBILITY INCREASED [None]
  - DELIRIUM [None]
  - PNEUMONIA [None]
  - PYREXIA [None]
  - BRONCHITIS [None]
  - DYSPHAGIA [None]
  - ASTHMA [None]
